FAERS Safety Report 4891893-2 (Version None)
Quarter: 2006Q1

REPORT INFORMATION
  Report Type: 
  Country: None (occurrence: None)
  Receive Date: 20060123
  Receipt Date: 20060109
  Transmission Date: 20060701
  Serious: Yes (Hospitalization)
  Sender: FDA-Public Use
  Company Number: 2005127011

PATIENT
  Age: 16 Year
  Sex: Male
  Weight: 100 kg

DRUGS (2)
  1. GENOTROPIN [Suspect]
     Indication: HYPOPITUITARISM
     Dosage: 2 MG (2 MG, 1 IN 1 D), SUBCUTANEOUS
     Route: 058
     Dates: start: 20050320
  2. LEVOTHYROXINE SODIUM [Concomitant]

REACTIONS (3)
  - APHASIA [None]
  - CEREBRAL INFARCTION [None]
  - HEMIPARESIS [None]
